FAERS Safety Report 9928821 (Version 1)
Quarter: 2014Q1

REPORT INFORMATION
  Report Type: Spontaneous
  Country: GB (occurrence: GB)
  Receive Date: 20140227
  Receipt Date: 20140227
  Transmission Date: 20141002
  Serious: Yes (Hospitalization)
  Sender: FDA-Public Use
  Company Number: PHHY2014GB020805

PATIENT
  Age: 73 Year
  Sex: Female

DRUGS (5)
  1. LANSOPRAZOLE [Suspect]
     Dosage: 30 MG, QD
  2. BISOPROLOL [Concomitant]
     Dosage: 5 MG, QD
  3. ASPIRIN [Concomitant]
     Dosage: 75 MG, QD
  4. ATORVASTATIN [Concomitant]
     Dosage: 20 MG, QD
  5. CALCICHEW D3 [Concomitant]

REACTIONS (9)
  - Hypocalcaemia [Recovering/Resolving]
  - Hypomagnesaemia [Recovering/Resolving]
  - Lethargy [Recovering/Resolving]
  - Palpitations [Recovering/Resolving]
  - Balance disorder [Recovering/Resolving]
  - Asthenia [Recovering/Resolving]
  - Nausea [Recovering/Resolving]
  - Vomiting [Recovering/Resolving]
  - Supraventricular tachycardia [Recovering/Resolving]
